FAERS Safety Report 7419806-X (Version None)
Quarter: 2011Q2

REPORT INFORMATION
  Report Type: 
  Country: None (occurrence: None)
  Receive Date: 20110413
  Receipt Date: 20110413
  Transmission Date: 20111010
  Serious: Yes (Hospitalization)
  Sender: FDA-Public Use
  Company Number: None

PATIENT
  Age: 77 Year
  Sex: Female
  Weight: 36.7 kg

DRUGS (10)
  1. MEGACE [Suspect]
     Indication: DECREASED APPETITE
     Dosage: 400 MG DAILY PO (ONE DOSE)
     Route: 048
     Dates: start: 20100816, end: 20100816
  2. CLONIDINE -CATAPRES- [Concomitant]
  3. LASIX [Concomitant]
  4. CLINDAMYCIN PHOSPHATE -CLEOCIN- [Concomitant]
  5. NORCO [Concomitant]
  6. LIDOCAINE-PRILOCAINE [Concomitant]
  7. TARCEVA [Concomitant]
  8. LEVAQUIN [Concomitant]
  9. ACETAMINOPHEN -TYLENOL EXTRA STRENGTH- [Concomitant]
  10. ALBUTEROL-IPRATROPIUM -COMBIVENT- [Concomitant]

REACTIONS (14)
  - FAILURE TO THRIVE [None]
  - ASTHENIA [None]
  - WEIGHT DECREASED [None]
  - SWOLLEN TONGUE [None]
  - FATIGUE [None]
  - DEHYDRATION [None]
  - OROPHARYNGEAL PAIN [None]
  - JAUNDICE [None]
  - MALAISE [None]
  - FALL [None]
  - LYMPHADENOPATHY [None]
  - RENAL FAILURE ACUTE [None]
  - TONGUE PARALYSIS [None]
  - HYPOPHAGIA [None]
